FAERS Safety Report 6415910-3 (Version None)
Quarter: 2009Q4

REPORT INFORMATION
  Report Type: 
  Country: None (occurrence: None)
  Receive Date: 20091027
  Receipt Date: 20091020
  Transmission Date: 20100525
  Serious: Yes (Hospitalization)
  Sender: FDA-Public Use
  Company Number: A0812224A

PATIENT
  Age: 46 Year
  Sex: Male
  Weight: 69.5 kg

DRUGS (7)
  1. AVANDIA [Suspect]
     Indication: DIABETES MELLITUS
     Dosage: 4MG TWICE PER DAY
     Route: 048
     Dates: start: 20000401, end: 20050101
  2. GLUCOTROL [Concomitant]
  3. PRAVACHOL [Concomitant]
     Dates: end: 20030101
  4. NIASPAN [Concomitant]
     Dates: start: 20030701
  5. NEXIUM [Concomitant]
  6. ATACAND [Concomitant]
  7. VYTORIN [Concomitant]
     Dates: start: 20050201

REACTIONS (1)
  - MYOCARDIAL INFARCTION [None]
